FAERS Safety Report 7382686-5 (Version None)
Quarter: 2011Q1

REPORT INFORMATION
  Report Type: 
  Country: None (occurrence: None)
  Receive Date: 20110330
  Receipt Date: 20110318
  Transmission Date: 20110831
  Serious: Yes (Death)
  Sender: FDA-Public Use
  Company Number: US-MYLANLABS-2010S1019997

PATIENT
  Age: 69 Year
  Sex: Male

DRUGS (1)
  1. AMNESTEEM [Suspect]

REACTIONS (1)
  - LUNG NEOPLASM MALIGNANT [None]
